FAERS Safety Report 25129937 (Version 1)
Quarter: 2025Q1

REPORT INFORMATION
  Report Type: Report from Study
  Country: US (occurrence: US)
  Receive Date: 20250327
  Receipt Date: 20250327
  Transmission Date: 20250409
  Serious: Yes (Other)
  Sender: NOVARTIS
  Company Number: US-002147023-NVSC2025US048010

PATIENT
  Sex: Female

DRUGS (1)
  1. KESIMPTA [Suspect]
     Active Substance: OFATUMUMAB
     Indication: Product used for unknown indication
     Route: 065

REACTIONS (11)
  - Adrenal insufficiency [Unknown]
  - Presyncope [Unknown]
  - Illness [Unknown]
  - Flushing [Unknown]
  - Influenza like illness [Not Recovered/Not Resolved]
  - Nausea [Unknown]
  - Pain [Unknown]
  - Arthralgia [Unknown]
  - Headache [Unknown]
  - Oropharyngeal pain [Unknown]
  - Body temperature abnormal [Unknown]
